FAERS Safety Report 13644917 (Version 1)
Quarter: 2017Q2

REPORT INFORMATION
  Report Type: Spontaneous
  Country: US (occurrence: US)
  Receive Date: 20170612
  Receipt Date: 20170612
  Transmission Date: 20170830
  Serious: No
  Sender: FDA-Public Use
  Company Number: US-ROCHE-1391826

PATIENT
  Sex: Female

DRUGS (1)
  1. XELODA [Suspect]
     Active Substance: CAPECITABINE
     Indication: PRODUCT USED FOR UNKNOWN INDICATION
     Dosage: 1 WEEK ON, 1 WEEK OFF, 2AM AND 3PM
     Route: 048
     Dates: start: 20120531

REACTIONS (4)
  - Dry skin [Unknown]
  - Drug dose omission [Unknown]
  - Diarrhoea [Unknown]
  - Neuropathy peripheral [Unknown]
